FAERS Safety Report 9391449 (Version 1)
Quarter: 2013Q3

REPORT INFORMATION
  Report Type: Spontaneous
  Country: US (occurrence: US)
  Receive Date: 20130709
  Receipt Date: 20130709
  Transmission Date: 20140515
  Serious: No
  Sender: FDA-Public Use
  Company Number: US-009507513-1307USA003594

PATIENT
  Age: 52 Year
  Sex: Female

DRUGS (1)
  1. VICTRELIS [Suspect]
     Indication: HEPATITIS C
     Dosage: 800 MG, TID
     Route: 048
     Dates: start: 20130621, end: 20130703

REACTIONS (5)
  - Aphagia [Unknown]
  - Panic attack [Unknown]
  - Anxiety [Unknown]
  - Insomnia [Unknown]
  - Adverse event [Unknown]
